FAERS Safety Report 7210002-8 (Version None)
Quarter: 2011Q1

REPORT INFORMATION
  Report Type: 
  Country: None (occurrence: None)
  Receive Date: 20110105
  Receipt Date: 20101221
  Transmission Date: 20110831
  Serious: No
  Sender: FDA-Public Use
  Company Number: US-BIOGENIDEC-2011BI000057

PATIENT
  Sex: Male

DRUGS (1)
  1. TYSABRI [Suspect]
     Indication: MULTIPLE SCLEROSIS
     Route: 042
     Dates: start: 20100927

REACTIONS (10)
  - IRRITABILITY [None]
  - DEPRESSED MOOD [None]
  - EMOTIONAL DISORDER [None]
  - ANXIETY [None]
  - FEELING ABNORMAL [None]
  - ANGER [None]
  - FRUSTRATION [None]
  - MOBILITY DECREASED [None]
  - AGGRESSION [None]
  - ADJUSTMENT DISORDER [None]
